FAERS Safety Report 4976959-0 (Version None)
Quarter: 2006Q2

REPORT INFORMATION
  Report Type: 
  Country: None (occurrence: None)
  Receive Date: 20060412
  Receipt Date: 20060327
  Transmission Date: 20061013
  Serious: Yes (Hospitalization)
  Sender: FDA-Public Use
  Company Number: US017234

PATIENT
  Age: 22 Year
  Sex: Male

DRUGS (2)
  1. ACTIQ [Suspect]
     Dates: start: 20041024
  2. UNDISCLOSED SUBSTANCE [Concomitant]

REACTIONS (8)
  - CONFUSIONAL STATE [None]
  - DYSARTHRIA [None]
  - HYPERTENSION [None]
  - HYPERVENTILATION [None]
  - INTENTIONAL DRUG MISUSE [None]
  - PNEUMONITIS [None]
  - TACHYCARDIA [None]
  - TACHYPNOEA [None]
